FAERS Safety Report 18558878 (Version 1)
Quarter: 2020Q4

REPORT INFORMATION
  Report Type: Spontaneous
  Country: US (occurrence: US)
  Receive Date: 20201130
  Receipt Date: 20201130
  Transmission Date: 20210114
  Serious: No
  Sender: FDA-Public Use
  Company Number: US-TAKEDA-2020TUS050925

PATIENT
  Sex: Female
  Weight: 102.04 kg

DRUGS (12)
  1. LEXAPRO [Concomitant]
     Active Substance: ESCITALOPRAM OXALATE
     Dosage: UNK
     Route: 065
  2. IBUPROFEN. [Concomitant]
     Active Substance: IBUPROFEN
     Route: 065
  3. TIZANIDINE. [Concomitant]
     Active Substance: TIZANIDINE
     Dosage: UNK
     Route: 065
  4. YAZ [Concomitant]
     Active Substance: DROSPIRENONE\ETHINYL ESTRADIOL
  5. CROMOLYN SODIUM. [Concomitant]
     Active Substance: CROMOLYN SODIUM
     Dosage: UNK
     Route: 065
  6. ACETAMINOPHEN. [Concomitant]
     Active Substance: ACETAMINOPHEN
     Dosage: UNK
     Route: 065
  7. ZOFRAN [Concomitant]
     Active Substance: ONDANSETRON HYDROCHLORIDE
     Route: 065
  8. KLONOPIN [Concomitant]
     Active Substance: CLONAZEPAM
     Route: 065
  9. ZYRTAM XL [Concomitant]
     Dosage: UNK
     Route: 065
  10. CUVITRU [Suspect]
     Active Substance: HUMAN IMMUNOGLOBULIN G
     Indication: IMMUNODEFICIENCY COMMON VARIABLE
     Dosage: 20 GRAM, Q2WEEKS
     Route: 058
     Dates: start: 20200924
  11. DIPHENHYDRAMINE. [Concomitant]
     Active Substance: DIPHENHYDRAMINE
     Dosage: UNK
     Route: 065
  12. EPINEPHRINE. [Concomitant]
     Active Substance: EPINEPHRINE
     Dosage: UNK
     Route: 065

REACTIONS (1)
  - Upper respiratory tract infection [Unknown]
